FAERS Safety Report 4761530-6 (Version None)
Quarter: 2005Q3

REPORT INFORMATION
  Report Type: 
  Country: None (occurrence: None)
  Receive Date: 20050906
  Receipt Date: 20050831
  Transmission Date: 20060218
  Serious: Yes (Life-Threatening)
  Sender: FDA-Public Use
  Company Number: 2005AP04666

PATIENT
  Sex: Female
  Weight: 46 kg

DRUGS (7)
  1. XYLOCAINE W/ EPINEPHRINE [Suspect]
     Indication: LOCAL ANAESTHESIA
     Dates: start: 20040310, end: 20040310
  2. MIDAZOLAM [Concomitant]
     Indication: INDUCTION OF ANAESTHESIA
     Dates: start: 20040310, end: 20040310
  3. BUTORPHANOL TARTRATE [Concomitant]
     Indication: INDUCTION OF ANAESTHESIA
     Dates: start: 20040310, end: 20040310
  4. PROPOFOL [Concomitant]
     Indication: INDUCTION OF ANAESTHESIA
     Dates: start: 20040310, end: 20040310
  5. PROPOFOL [Concomitant]
     Indication: MAINTENANCE OF ANAESTHESIA
     Dates: start: 20040310, end: 20040310
  6. PROPOFOL [Concomitant]
     Dates: start: 20040310, end: 20040310
  7. PROPOFOL [Concomitant]
     Dates: start: 20040310, end: 20040310

REACTIONS (7)
  - ACUTE MYOCARDIAL INFARCTION [None]
  - BLOOD PRESSURE INCREASED [None]
  - CARDIAC FAILURE [None]
  - CARDIOMYOPATHY [None]
  - PULMONARY CONGESTION [None]
  - TACHYCARDIA [None]
  - VENTRICULAR EXTRASYSTOLES [None]
